FAERS Safety Report 16413489 (Version 1)
Quarter: 2019Q2

REPORT INFORMATION
  Report Type: Spontaneous
  Country: BR (occurrence: BR)
  Receive Date: 20190611
  Receipt Date: 20190611
  Transmission Date: 20190711
  Serious: Yes (Other)
  Sender: FDA-Public Use
  Company Number: BR-TEVA-2019-BR-1062620

PATIENT
  Sex: Female

DRUGS (1)
  1. COPAXONE [Suspect]
     Active Substance: GLATIRAMER ACETATE
     Route: 065

REACTIONS (6)
  - Lower limb fracture [Unknown]
  - Shock [Unknown]
  - Burning sensation [Unknown]
  - Bladder pain [Unknown]
  - Muscle rupture [Unknown]
  - Renal pain [Unknown]

NARRATIVE: CASE EVENT DATE: 20190527
